FAERS Safety Report 15719420 (Version 1)
Quarter: 2018Q4

REPORT INFORMATION
  Report Type: Spontaneous
  Country: JP (occurrence: JP)
  Receive Date: 20181213
  Receipt Date: 20181213
  Transmission Date: 20190205
  Serious: Yes (Hospitalization, Other)
  Sender: FDA-Public Use
  Company Number: PHHY2018JP176640

PATIENT
  Age: 25 Year
  Sex: Female
  Weight: 80 kg

DRUGS (3)
  1. METHYLPREDNISOLONE. [Suspect]
     Active Substance: METHYLPREDNISOLONE
     Indication: MYASTHENIA GRAVIS
     Dosage: 30 MG, QD
     Route: 048
  2. METHYLPREDNISOLONE. [Suspect]
     Active Substance: METHYLPREDNISOLONE
     Dosage: 1000 MG, UNK
     Route: 042
     Dates: start: 201004
  3. PYRIDOSTIGMINE [Concomitant]
     Active Substance: PYRIDOSTIGMINE
     Indication: MYASTHENIA GRAVIS
     Dosage: 60 MG, QD
     Route: 065

REACTIONS (8)
  - Arthralgia [Unknown]
  - Eyelid ptosis [Recovering/Resolving]
  - Osteonecrosis [Unknown]
  - Disease recurrence [Recovering/Resolving]
  - Muscular weakness [Recovering/Resolving]
  - Arthritis [Unknown]
  - Myasthenia gravis [Recovering/Resolving]
  - Product use in unapproved indication [Unknown]

NARRATIVE: CASE EVENT DATE: 2010
